FAERS Safety Report 23445781 (Version 1)
Quarter: 2024Q1

REPORT INFORMATION
  Report Type: Spontaneous
  Country: JP (occurrence: JP)
  Receive Date: 20240126
  Receipt Date: 20240126
  Transmission Date: 20240409
  Serious: Yes (Death, Other)
  Sender: FDA-Public Use
  Company Number: JP-TAKEDA-2024TJP001013

PATIENT
  Age: 86 Year
  Sex: Male
  Weight: 50.8 kg

DRUGS (4)
  1. CABOMETYX [Suspect]
     Active Substance: CABOZANTINIB S-MALATE
     Indication: Hepatocellular carcinoma
     Dosage: 40 MG, QD
     Route: 065
     Dates: start: 20230314, end: 20230329
  2. CABOMETYX [Suspect]
     Active Substance: CABOZANTINIB S-MALATE
     Dosage: 20 MG, QD
     Route: 065
     Dates: start: 20230330, end: 20230425
  3. CABOMETYX [Suspect]
     Active Substance: CABOZANTINIB S-MALATE
     Dosage: 6 MG, QD
     Route: 065
     Dates: start: 20230509, end: 20230605
  4. CABOMETYX [Suspect]
     Active Substance: CABOZANTINIB S-MALATE
     Dosage: 10 MG, QD
     Route: 065
     Dates: start: 20230606, end: 20230724

REACTIONS (1)
  - Death [Fatal]

NARRATIVE: CASE EVENT DATE: 20231016
